FAERS Safety Report 22023081 (Version 1)
Quarter: 2023Q1

REPORT INFORMATION
  Report Type: Spontaneous
  Country: US (occurrence: US)
  Receive Date: 20230222
  Receipt Date: 20230222
  Transmission Date: 20230417
  Serious: No
  Sender: FDA-Public Use
  Company Number: US-BRACCO-2022US01365

PATIENT
  Age: 62 Year
  Sex: Male

DRUGS (6)
  1. ISOVUE 300 [Suspect]
     Active Substance: IOPAMIDOL
     Indication: Diagnostic procedure
  2. COENZYME Q10 [Concomitant]
     Active Substance: DIETARY SUPPLEMENT\UBIDECARENONE
  3. ATORVASTATIN [Concomitant]
     Active Substance: ATORVASTATIN
  4. ASPIRIN [Concomitant]
     Active Substance: ASPIRIN
  5. LISINOPRIL [Concomitant]
     Active Substance: LISINOPRIL
  6. METOPROLOL [Concomitant]
     Active Substance: METOPROLOL

REACTIONS (3)
  - Chills [Unknown]
  - Thyroid function test abnormal [Unknown]
  - Feeling cold [Unknown]

NARRATIVE: CASE EVENT DATE: 20200421
